FAERS Safety Report 24936375 (Version 1)
Quarter: 2025Q1

REPORT INFORMATION
  Report Type: Spontaneous
  Country: US (occurrence: US)
  Receive Date: 20250206
  Receipt Date: 20250206
  Transmission Date: 20250408
  Serious: Yes (Hospitalization, Other)
  Sender: GLENMARK
  Company Number: US-GLENMARK PHARMACEUTICALS-2025GMK097550

PATIENT

DRUGS (26)
  1. MUPIROCIN [Suspect]
     Active Substance: MUPIROCIN
     Indication: Mouth ulceration
     Route: 065
  2. SIROLIMUS [Suspect]
     Active Substance: SIROLIMUS
     Indication: Immunosuppressant drug therapy
     Dosage: 0.68 MILLIGRAM, TID (0.68 MG, EVERY 4 HOURS FOR 3 DOSES)
     Route: 048
     Dates: start: 20201026, end: 20201027
  3. SIROLIMUS [Suspect]
     Active Substance: SIROLIMUS
     Dosage: 0.17 MILLIGRAM, BID
     Route: 048
     Dates: start: 20201027, end: 20201028
  4. SIROLIMUS [Suspect]
     Active Substance: SIROLIMUS
     Route: 048
     Dates: start: 20201029, end: 20201029
  5. SIROLIMUS [Suspect]
     Active Substance: SIROLIMUS
     Route: 048
     Dates: start: 20201029, end: 20201029
  6. SIROLIMUS [Suspect]
     Active Substance: SIROLIMUS
     Dosage: 0.15 MILLIGRAM, BID
     Route: 048
     Dates: start: 20201030, end: 20201117
  7. SIROLIMUS [Suspect]
     Active Substance: SIROLIMUS
     Route: 048
     Dates: start: 20201118, end: 20201118
  8. SIROLIMUS [Suspect]
     Active Substance: SIROLIMUS
     Route: 048
     Dates: start: 20201118, end: 20201118
  9. SIROLIMUS [Suspect]
     Active Substance: SIROLIMUS
     Dosage: 0.14 MILLIGRAM, BID
     Route: 048
     Dates: start: 20201119, end: 20201222
  10. SIROLIMUS [Suspect]
     Active Substance: SIROLIMUS
     Route: 048
     Dates: start: 20201223, end: 20201224
  11. SIROLIMUS [Suspect]
     Active Substance: SIROLIMUS
     Dosage: 0.14 MILLIGRAM, BID
     Route: 048
     Dates: start: 20201225, end: 20210331
  12. SIROLIMUS [Suspect]
     Active Substance: SIROLIMUS
     Route: 048
     Dates: start: 20210401, end: 20210401
  13. SIROLIMUS [Suspect]
     Active Substance: SIROLIMUS
     Dosage: 0.16 MILLIGRAM, BID
     Route: 048
     Dates: start: 20210402, end: 20210411
  14. SIROLIMUS [Suspect]
     Active Substance: SIROLIMUS
     Route: 048
     Dates: start: 20210412, end: 20210412
  15. SIROLIMUS [Suspect]
     Active Substance: SIROLIMUS
     Route: 048
     Dates: start: 20210412, end: 20210412
  16. SIROLIMUS [Suspect]
     Active Substance: SIROLIMUS
     Dosage: 0.18 MILLIGRAM, BID
     Route: 048
     Dates: start: 20210413
  17. LIDOCAINE\PRILOCAINE [Concomitant]
     Active Substance: LIDOCAINE\PRILOCAINE
     Indication: Product used for unknown indication
     Route: 065
     Dates: start: 20200417
  18. SODIUM CHLORIDE [Concomitant]
     Active Substance: SODIUM CHLORIDE
     Indication: Product used for unknown indication
     Route: 065
     Dates: start: 20200417
  19. DIPHENHYDRAMINE [Concomitant]
     Active Substance: DIPHENHYDRAMINE
     Indication: Product used for unknown indication
     Route: 065
     Dates: start: 20200417
  20. ACETAMINOPHEN [Concomitant]
     Active Substance: ACETAMINOPHEN
     Indication: Product used for unknown indication
     Route: 065
     Dates: start: 201906
  21. BACTRIM [Concomitant]
     Active Substance: SULFAMETHOXAZOLE\TRIMETHOPRIM
     Indication: Product used for unknown indication
     Route: 065
     Dates: start: 20201028
  22. MELATONIN [Concomitant]
     Active Substance: MELATONIN
     Indication: Product used for unknown indication
     Route: 065
     Dates: start: 20201113
  23. ACETAZOLAMIDE [Concomitant]
     Active Substance: ACETAZOLAMIDE
     Indication: Product used for unknown indication
     Route: 065
     Dates: start: 20201121, end: 20210501
  24. TACROLIMUS [Concomitant]
     Active Substance: TACROLIMUS
     Indication: Product used for unknown indication
     Route: 065
     Dates: start: 20201029
  25. NYSTATIN [Concomitant]
     Active Substance: NYSTATIN
     Indication: Product used for unknown indication
     Route: 065
     Dates: start: 20210401
  26. DIETARY FIBRE [Concomitant]
     Indication: Product used for unknown indication
     Route: 065
     Dates: start: 20210418

REACTIONS (7)
  - Oral herpes [Recovered/Resolved]
  - Mouth ulceration [Recovered/Resolved]
  - Decreased activity [Recovering/Resolving]
  - Hypophagia [Recovering/Resolving]
  - Heart rate increased [Recovering/Resolving]
  - Pain [Recovering/Resolving]
  - Product use in unapproved indication [Unknown]
